FAERS Safety Report 8239957-X (Version None)
Quarter: 2012Q1

REPORT INFORMATION
  Report Type: 
  Country: None (occurrence: None)
  Receive Date: 20120309
  Receipt Date: 20110411
  Transmission Date: 20120608
  Serious: Yes (Other)
  Sender: FDA-Public Use
  Company Number: PHHY2011US30951

PATIENT
  Age: 49 Year
  Sex: Female

DRUGS (3)
  1. ANTIDEPRESSANTS (NO INGREDIENTS/SUBSTANCES) [Concomitant]
  2. EXTAVIA [Suspect]
     Indication: MULTIPLE SCLEROSIS
     Dosage: 0.125 MG, QOD, SUBCUTANEOUS 0.50 MG, UNK, SUBCUTANEOUS
     Route: 058
     Dates: start: 20110412
  3. EXTAVIA [Suspect]
     Indication: MULTIPLE SCLEROSIS
     Dosage: 0.125 MG, QOD, SUBCUTANEOUS 0.50 MG, UNK, SUBCUTANEOUS
     Route: 058
     Dates: start: 20110319

REACTIONS (5)
  - HEADACHE [None]
  - VERTIGO [None]
  - NEGATIVE THOUGHTS [None]
  - DIZZINESS [None]
  - DEPRESSION [None]
